FAERS Safety Report 16584006 (Version 1)
Quarter: 2019Q3

REPORT INFORMATION
  Report Type: Report from Study
  Country: NL (occurrence: NL)
  Receive Date: 20190717
  Receipt Date: 20190717
  Transmission Date: 20191004
  Serious: Yes (Other)
  Sender: FDA-Public Use
  Company Number: NL-TEVA-2019-NL-1077553

PATIENT
  Age: 62 Year
  Sex: Female

DRUGS (8)
  1. BACLOFEN 10 MG [Concomitant]
     Active Substance: BACLOFEN
     Dosage: 2 TABLETS
  2. COPAXONE [Suspect]
     Active Substance: GLATIRAMER ACETATE
     Indication: MULTIPLE SCLEROSIS
     Route: 058
     Dates: start: 20150506
  3. PAROXETIN 20 MG [Concomitant]
     Dosage: 1 TABLET
  4. NIFEDIPINE 10 MG [Concomitant]
     Dosage: 2 TABLETS
  5. OXIBUTININE 2.5 MG [Concomitant]
     Dosage: 3 TABLETS
  6. ENALAPRIL 20 MG [Concomitant]
     Active Substance: ENALAPRIL
     Dosage: 2 TABLETS
  7. SIRDALUD 5 MG [Concomitant]
     Dosage: 2 TABLETS
  8. NITROFURANTOINE 50 MG [Concomitant]
     Dosage: MAINTANANCE DOSE ANTIBIOTICS FOR BLADDER

REACTIONS (1)
  - Pyelocaliectasis [Recovered/Resolved]

NARRATIVE: CASE EVENT DATE: 201903
